FAERS Safety Report 23643177 (Version 1)
Quarter: 2024Q1

REPORT INFORMATION
  Report Type: Spontaneous
  Country: JP (occurrence: JP)
  Receive Date: 20240318
  Receipt Date: 20240318
  Transmission Date: 20240409
  Serious: Yes (Other)
  Sender: FDA-Public Use
  Company Number: JP-PFIZER INC-PV202400034937

PATIENT
  Age: 75 Year
  Sex: Male

DRUGS (9)
  1. BESPONSA [Suspect]
     Active Substance: INOTUZUMAB OZOGAMICIN
     Indication: Acute lymphocytic leukaemia
     Dosage: 0.8 MG/M2, DAILY
     Route: 042
     Dates: start: 20230713, end: 20230713
  2. BESPONSA [Suspect]
     Active Substance: INOTUZUMAB OZOGAMICIN
     Dosage: 0.5 MG/M2, DAILY
     Route: 042
     Dates: start: 20230720, end: 20230720
  3. BESPONSA [Suspect]
     Active Substance: INOTUZUMAB OZOGAMICIN
     Dosage: 0.5 MG/M2, DAILY
     Route: 042
     Dates: start: 20230727, end: 20230727
  4. BESPONSA [Suspect]
     Active Substance: INOTUZUMAB OZOGAMICIN
     Dosage: 0.5 MG/M2, DAILY
     Route: 042
     Dates: start: 20230810, end: 20230810
  5. BESPONSA [Suspect]
     Active Substance: INOTUZUMAB OZOGAMICIN
     Dosage: 0.5 MG/M2, DAILY
     Route: 042
     Dates: start: 20230817, end: 20230817
  6. BESPONSA [Suspect]
     Active Substance: INOTUZUMAB OZOGAMICIN
     Dosage: 0.5 MG/M2, DAILY
     Route: 042
     Dates: start: 20230824, end: 20230824
  7. BESPONSA [Suspect]
     Active Substance: INOTUZUMAB OZOGAMICIN
     Dosage: 0.5 MG/M2, DAILY
     Route: 042
     Dates: start: 20230907, end: 20230907
  8. BESPONSA [Suspect]
     Active Substance: INOTUZUMAB OZOGAMICIN
     Dosage: 0.5 MG/M2, DAILY
     Route: 042
     Dates: start: 20230914, end: 20230914
  9. BESPONSA [Suspect]
     Active Substance: INOTUZUMAB OZOGAMICIN
     Dosage: 0.5 MG/M2, DAILY
     Route: 042
     Dates: start: 20230921, end: 20230921

REACTIONS (7)
  - Venoocclusive liver disease [Recovering/Resolving]
  - Ascites [Recovering/Resolving]
  - Vasodilatation [Recovering/Resolving]
  - Portal vein flow decreased [Recovering/Resolving]
  - Fibrosis [Recovering/Resolving]
  - Liver disorder [Recovering/Resolving]
  - Vein disorder [Recovering/Resolving]

NARRATIVE: CASE EVENT DATE: 20230928
